FAERS Safety Report 4533563-6 (Version None)
Quarter: 2004Q4

REPORT INFORMATION
  Report Type: 
  Country: None (occurrence: None)
  Receive Date: 20041206
  Receipt Date: 20041004
  Transmission Date: 20050328
  Serious: No
  Sender: FDA-Public Use
  Company Number: USA041080024

PATIENT
  Age: 61 Year
  Sex: Female

DRUGS (2)
  1. CYMBALTA [Suspect]
     Indication: DEPRESSION
     Dosage: 30 MG DAY
     Dates: start: 20040928
  2. HORMONES [Concomitant]

REACTIONS (4)
  - COGNITIVE DISORDER [None]
  - DRY MOUTH [None]
  - HYPERHIDROSIS [None]
  - THINKING ABNORMAL [None]
